FAERS Safety Report 9026641 (Version 1)
Quarter: 2013Q1

REPORT INFORMATION
  Report Type: Spontaneous
  Country: SE (occurrence: None)
  Receive Date: 20130104
  Receipt Date: 20130104
  Transmission Date: 20140127
  Serious: Yes (Other)
  Sender: FDA-Public Use
  Company Number: 2013034340

PATIENT
  Age: 58 Year
  Sex: Female

DRUGS (5)
  1. HIZENTRA (IMMUNOGLOBULIN HUMAN NORMAL) [Suspect]
     Dates: start: 20120911
  2. SINGULAIR [Concomitant]
  3. AERIUS (DESLORATADINE) [Concomitant]
  4. KALCIPOS-D (LEKOVIT CA) [Concomitant]
  5. RINEXIN (PHENYLPROPANOLAMINE HYDROCHLORIDE) [Concomitant]

REACTIONS (9)
  - Neck pain [None]
  - Back pain [None]
  - Arthralgia [None]
  - Pain in extremity [None]
  - Nausea [None]
  - Headache [None]
  - Abdominal pain [None]
  - Malaise [None]
  - Fatigue [None]
